FAERS Safety Report 4946068-5 (Version None)
Quarter: 2006Q1

REPORT INFORMATION
  Report Type: 
  Country: None (occurrence: None)
  Receive Date: 20060316
  Receipt Date: 20051213
  Transmission Date: 20060701
  Serious: Yes (Hospitalization)
  Sender: FDA-Public Use
  Company Number: US-MERCK-0512USA02120

PATIENT
  Age: 60 Year
  Sex: Female
  Weight: 77 kg

DRUGS (18)
  1. VITAMINS (UNSPECIFIED) [Concomitant]
     Route: 065
  2. VITAMIN E [Concomitant]
     Route: 065
  3. OMEGA-3 MARINE TRIGLYCERIDES [Concomitant]
     Route: 065
  4. ASPIRIN [Concomitant]
     Route: 065
  5. PEPTO-BISMOL [Concomitant]
     Route: 065
  6. VIOXX [Suspect]
     Indication: MUSCLE SPASMS
     Route: 048
     Dates: start: 20010115, end: 20010101
  7. VIOXX [Suspect]
     Indication: ARTHRALGIA
     Route: 048
     Dates: start: 20010115, end: 20010101
  8. SYNTHROID [Concomitant]
     Route: 065
  9. NORVASC [Concomitant]
     Route: 065
  10. LIPITOR [Concomitant]
     Route: 065
  11. [THERAPY UNSPECIFIED] [Concomitant]
     Route: 065
  12. ZOLOFT [Concomitant]
     Route: 065
  13. QUININE [Concomitant]
     Route: 065
  14. CLARITIN [Concomitant]
     Route: 065
  15. ESTRATEST [Concomitant]
     Route: 065
  16. ANGI SPRAY (CHLOROBUTANOL (+) HEXETIDINE (+) PROPIONIC ACID) [Concomitant]
     Route: 065
  17. CYANOCOBALAMIN [Concomitant]
     Route: 065
  18. ALLERGENIC EXTRACT [Concomitant]
     Route: 065

REACTIONS (11)
  - CARDIAC FLUTTER [None]
  - CHEST PAIN [None]
  - CORONARY ARTERY DISEASE [None]
  - DIZZINESS [None]
  - EXERCISE TEST ABNORMAL [None]
  - GASTROOESOPHAGEAL REFLUX DISEASE [None]
  - GLUCOSE TOLERANCE IMPAIRED [None]
  - HYPERLIPIDAEMIA [None]
  - HYPERTENSION [None]
  - NEUROPATHY PERIPHERAL [None]
  - PALPITATIONS [None]
